FAERS Safety Report 20580713 (Version 1)
Quarter: 2022Q1

REPORT INFORMATION
  Report Type: Spontaneous
  Country: GB (occurrence: GB)
  Receive Date: 20220311
  Receipt Date: 20220311
  Transmission Date: 20220423
  Serious: Yes (Hospitalization, Other)
  Sender: FDA-Public Use
  Company Number: None

PATIENT
  Age: 69 Year
  Sex: Male

DRUGS (7)
  1. CEFUROXIME AXETIL [Suspect]
     Active Substance: CEFUROXIME AXETIL
     Indication: Antibiotic therapy
     Dosage: 1 DOSAGE FORM, 1 TOTAL
     Route: 065
  2. ACETAZOLAMIDE [Concomitant]
     Active Substance: ACETAZOLAMIDE
     Indication: Preoperative care
     Dosage: 250 MILLIGRAM, QID
     Route: 048
  3. BIMATOPROST [Concomitant]
     Active Substance: BIMATOPROST
     Indication: Preoperative care
     Dosage: EVERY ONE DAY
     Route: 047
  4. BRIMONIDINE [Concomitant]
     Active Substance: BRIMONIDINE TARTRATE
     Indication: Preoperative care
     Dosage: EVERY 12 HOURS
     Route: 047
  5. BRINZOLAMIDE [Concomitant]
     Active Substance: BRINZOLAMIDE
     Indication: Preoperative care
     Dosage: EVERY 8 HOUR
     Route: 047
  6. DEXAMETHASONE [Concomitant]
     Active Substance: DEXAMETHASONE
     Indication: Product used for unknown indication
     Dosage: 1 DOSAGE FORM
     Route: 057
  7. Timolol 0.1% [Concomitant]
     Indication: Preoperative care
     Dosage: EVERY 12 HOUR
     Route: 047

REACTIONS (9)
  - Ocular toxicity [Recovering/Resolving]
  - Product administered at inappropriate site [Recovered/Resolved]
  - Disruption of the photoreceptor inner segment-outer segment [Recovering/Resolving]
  - Macular detachment [Not Recovered/Not Resolved]
  - Dyschromatopsia [Recovering/Resolving]
  - Retinoschisis [Recovering/Resolving]
  - Vitritis [Recovering/Resolving]
  - Retinal toxicity [Recovering/Resolving]
  - Vitreous haze [Recovering/Resolving]
